FAERS Safety Report 17571085 (Version 1)
Quarter: 2020Q1

REPORT INFORMATION
  Report Type: Spontaneous
  Country: US (occurrence: US)
  Receive Date: 20200317
  Receipt Date: 20200317
  Transmission Date: 20200409
  Serious: No
  Sender: FDA-Public Use
  Company Number: None

PATIENT
  Age: 69 Year
  Sex: Male

DRUGS (1)
  1. CAPECITABINE 500MG NOVADOZ PHARMACEUTICALS [Suspect]
     Active Substance: CAPECITABINE
     Indication: COLON CANCER
     Dosage: ?          OTHER FREQUENCY:3 TAB 8AM, 4 TAB 8;?
     Route: 048
     Dates: start: 20200313

REACTIONS (3)
  - Spinal synovial cyst [None]
  - Genital abscess [None]
  - Testicular mass [None]

NARRATIVE: CASE EVENT DATE: 20200313
